FAERS Safety Report 9351603 (Version 2)
Quarter: 2013Q3

REPORT INFORMATION
  Report Type: Spontaneous
  Country: FR (occurrence: FR)
  Receive Date: 20130617
  Receipt Date: 20130913
  Transmission Date: 20140515
  Serious: Yes (Other)
  Sender: FDA-Public Use
  Company Number: FR-PFIZER INC-2013175869

PATIENT
  Age: 65 Year
  Sex: Female

DRUGS (2)
  1. INLYTA [Suspect]
     Indication: RENAL CANCER
     Dosage: 5 MG, 2X/DAY
     Route: 048
     Dates: start: 20130425, end: 20130524
  2. INLYTA [Suspect]
     Dosage: { 3 MG, 2X/DAY
     Route: 048
     Dates: start: 20130603, end: 20130704

REACTIONS (3)
  - Hepatocellular injury [Recovered/Resolved]
  - Disease progression [Unknown]
  - Renal cancer [Unknown]
